FAERS Safety Report 5927727-4 (Version None)
Quarter: 2008Q4

REPORT INFORMATION
  Report Type: 
  Country: None (occurrence: None)
  Receive Date: 20081020
  Receipt Date: 20081002
  Transmission Date: 20090506
  Serious: Yes (Other)
  Sender: FDA-Public Use
  Company Number: DSA_62346_2008

PATIENT
  Age: 40 Year
  Sex: Female

DRUGS (1)
  1. DIASTAT ACUDIAL [Suspect]
     Indication: CONVULSION
     Dosage: 20 MG PRN; RECTAL
     Route: 054

REACTIONS (3)
  - CONVULSION [None]
  - DEVICE INEFFECTIVE [None]
  - PRODUCT QUALITY ISSUE [None]
